FAERS Safety Report 9789204 (Version 2)
Quarter: 2014Q1

REPORT INFORMATION
  Report Type: Spontaneous
  Country: US (occurrence: US)
  Receive Date: 20131230
  Receipt Date: 20140210
  Transmission Date: 20141002
  Serious: No
  Sender: FDA-Public Use
  Company Number: US-009507513-1312USA006538

PATIENT
  Age: 28 Year
  Sex: Female
  Weight: 58.96 kg

DRUGS (1)
  1. NUVARING [Suspect]
     Indication: CONTRACEPTION
     Dosage: UNK
     Route: 067
     Dates: start: 201112

REACTIONS (4)
  - Vaginal haemorrhage [Unknown]
  - Device expulsion [Unknown]
  - Drug dose omission [Unknown]
  - Product quality issue [Unknown]
